FAERS Safety Report 7785283-2 (Version None)
Quarter: 2011Q3

REPORT INFORMATION
  Report Type: 
  Country: None (occurrence: None)
  Receive Date: 20110929
  Receipt Date: 20110923
  Transmission Date: 20111222
  Serious: Yes (Death, Hospitalization, Disabling, Other)
  Sender: FDA-Public Use
  Company Number: GR-BAYER-201036042GPV

PATIENT
  Age: 64 Year
  Sex: Male
  Weight: 78 kg

DRUGS (16)
  1. SORAFENIB (RAF KINASE INHIBITOR) [Suspect]
     Indication: NON-SMALL CELL LUNG CANCER
     Route: 048
     Dates: start: 20100720, end: 20100806
  2. RAMIPRIL [Concomitant]
     Indication: CORONARY ARTERY DISEASE
     Dosage: 0.25 MG, QD
     Route: 048
     Dates: start: 20090901, end: 20100901
  3. RAMIPRIL [Concomitant]
     Indication: CARDIAC FAILURE
  4. LIPITOR [Concomitant]
     Indication: HYPERLIPIDAEMIA
     Dosage: 20 MG, QD
     Route: 048
     Dates: start: 20061228, end: 20100901
  5. ULTRAVIST 150 [Concomitant]
     Dosage: DAILY DOSE 100 ML
     Dates: start: 20100713, end: 20100713
  6. SOLOSA [Concomitant]
     Indication: DIABETES MELLITUS
     Dosage: 2 MG, QD
     Route: 048
     Dates: start: 20000101, end: 20100901
  7. LASIX [Concomitant]
     Indication: CARDIAC FAILURE
     Dosage: 40 MG, QD
     Dates: start: 20100101, end: 20100901
  8. GLUCOPHAGE [Concomitant]
     Indication: DIABETES MELLITUS
     Dosage: 850 MG (DAILY DOSE)
     Route: 048
     Dates: start: 20000101, end: 20100710
  9. CARVEDILOL [Concomitant]
     Indication: PROPHYLAXIS
  10. METFORMIN HYDROCHLORIDE [Concomitant]
     Dosage: 50/850 MG QD
     Dates: start: 20100716, end: 20100901
  11. CLOPIDOGREL BISULFATE [Concomitant]
     Indication: CORONARY ARTERY DISEASE
     Dosage: 75 MG, QD
     Route: 048
     Dates: start: 20090901, end: 20100901
  12. CARVEDILOL [Concomitant]
     Indication: CARDIAC FAILURE
  13. RAMIPRIL [Concomitant]
     Indication: PROPHYLAXIS
  14. GLUCOPHAGE [Concomitant]
     Dosage: 850 MG, QD
     Dates: start: 20100716, end: 20100901
  15. CARVEDILOL [Concomitant]
     Indication: CORONARY ARTERY DISEASE
     Dosage: 25 MG, QD
     Route: 048
     Dates: start: 20061228, end: 20100901
  16. METFORMIN HYDROCHLORIDE [Concomitant]
     Indication: DIABETES MELLITUS
     Dosage: 50/850 MG (DAILY DOSE)
     Route: 048
     Dates: start: 20080101, end: 20100710

REACTIONS (3)
  - GENERAL PHYSICAL HEALTH DETERIORATION [None]
  - DEEP VEIN THROMBOSIS [None]
  - CEREBRAL ISCHAEMIA [None]
